FAERS Safety Report 10623614 (Version 1)
Quarter: 2014Q4

REPORT INFORMATION
  Report Type: Spontaneous
  Country: TW (occurrence: TW)
  Receive Date: 20141203
  Receipt Date: 20141203
  Transmission Date: 20150529
  Serious: Yes (Hospitalization)
  Sender: FDA-Public Use
  Company Number: PHHY2014TW155272

PATIENT
  Age: 9 Month
  Sex: Male
  Weight: 12 kg

DRUGS (1)
  1. ASCORBIC ACID. [Suspect]
     Active Substance: ASCORBIC ACID
     Indication: PRODUCT USED FOR UNKNOWN INDICATION
     Dosage: 2000 MG, Q4H
     Route: 042

REACTIONS (6)
  - Haemolytic anaemia [Unknown]
  - Chromaturia [Unknown]
  - Normochromic normocytic anaemia [Unknown]
  - Pyrexia [Unknown]
  - Tachycardia [Unknown]
  - Mouth ulceration [Unknown]
